FAERS Safety Report 4367322-4 (Version None)
Quarter: 2004Q2

REPORT INFORMATION
  Report Type: 
  Country: None (occurrence: None)
  Receive Date: 20040528
  Receipt Date: 20040528
  Transmission Date: 20050107
  Serious: Yes (Life-Threatening)
  Sender: FDA-Public Use
  Company Number: None

PATIENT
  Age: 36 Year
  Sex: Female
  Weight: 72.5755 kg

DRUGS (3)
  1. ZOSYN [Suspect]
     Dosage: 4.5 G Q 8 H
     Dates: start: 20040504, end: 20040525
  2. ZOSYN [Suspect]
  3. TOBRAMYCIN [Suspect]
     Dosage: 300 MG Q 24 H
     Dates: start: 20040504, end: 20040525

REACTIONS (1)
  - NEUTROPENIA [None]
